FAERS Safety Report 11329862 (Version 3)
Quarter: 2025Q3

REPORT INFORMATION
  Report Type: Spontaneous
  Country: EU (occurrence: EU)
  Receive Date: 20150803
  Receipt Date: 20250809
  Transmission Date: 20251020
  Serious: Yes (Hospitalization, Other)
  Sender: ALEXION PHARMACEUTICALS
  Company Number: 2015SE73391

PATIENT
  Age: 50 Year
  Sex: Male
  Weight: 93 kg

DRUGS (6)
  1. BYDUREON [Suspect]
     Active Substance: EXENATIDE
     Indication: Type 2 diabetes mellitus
     Dosage: 1 DOSAGE FORM, QW
     Dates: start: 20150611, end: 20150627
  2. JARDIANCE [Suspect]
     Active Substance: EMPAGLIFLOZIN
     Dosage: 10 MILLIGRAM, QD
     Dates: start: 20150310, end: 20150627
  3. ASPIRIN [Concomitant]
     Active Substance: ASPIRIN
     Dosage: 100 MILLIGRAM, QD
     Dates: start: 20150612
  4. METFORMIN [Concomitant]
     Active Substance: METFORMIN HYDROCHLORIDE
     Dosage: 850 MILLIGRAM, BID
     Dates: start: 2004
  5. ATORVASTATIN [Concomitant]
     Active Substance: ATORVASTATIN
     Indication: Hypercholesterolaemia
     Dosage: 10 MILLIGRAM, QD
     Dates: start: 20150327
  6. CLOPIDOGREL [Concomitant]
     Active Substance: CLOPIDOGREL BISULFATE
     Route: 065

REACTIONS (4)
  - Gastritis [Recovered/Resolved]
  - Hepatitis acute [Recovering/Resolving]
  - Hepatic steatosis [Recovering/Resolving]
  - Hepatic enzyme increased [Recovering/Resolving]

NARRATIVE: CASE EVENT DATE: 20150627
